FAERS Safety Report 10010038 (Version 1)
Quarter: 2014Q1

REPORT INFORMATION
  Report Type: Spontaneous
  Country: US (occurrence: US)
  Receive Date: 20140312
  Receipt Date: 20140312
  Transmission Date: 20141002
  Serious: No
  Sender: FDA-Public Use
  Company Number: US-INCYTE CORPORATION-2013IN001259

PATIENT
  Sex: Male

DRUGS (18)
  1. JAKAFI [Suspect]
     Indication: POLYCYTHAEMIA VERA
     Dosage: 15 MG, BID
     Route: 048
     Dates: start: 20130528, end: 20130613
  2. PEGASYS [Concomitant]
  3. FIBERCON [Concomitant]
  4. MVI [Concomitant]
  5. SINGULAIR [Concomitant]
  6. ASPIRIN [Concomitant]
     Dosage: 81 MG
  7. ZANTAC [Concomitant]
  8. AXONA POWDER PACKET [Concomitant]
  9. VITAMIN E [Concomitant]
     Dosage: 1000 UNIT CP
  10. SAW PALMETTO [Concomitant]
  11. FISH OIL [Concomitant]
  12. AMBIEN [Concomitant]
  13. LACTULOSE [Concomitant]
  14. LYRICA [Concomitant]
  15. VICODIN [Concomitant]
  16. NEXIUM [Concomitant]
  17. ALLOPURINOL [Concomitant]
  18. HYCODAN [Concomitant]

REACTIONS (4)
  - Wheezing [Unknown]
  - Drug dose omission [Unknown]
  - Cough [Unknown]
  - Oropharyngeal pain [Unknown]
